FAERS Safety Report 8821611 (Version 1)
Quarter: 2012Q4

REPORT INFORMATION
  Report Type: 
  Country: US (occurrence: US)
  Receive Date: 20121002
  Receipt Date: 20121002
  Transmission Date: 20130627
  Serious: Yes (Death)
  Sender: FDA-Public Use
  Company Number: US-ROCHE-1123602

PATIENT
  Sex: Male

DRUGS (1)
  1. RITUXAN [Suspect]
     Indication: CHRONIC LYMPHOCYTIC LEUKAEMIA
     Route: 065
     Dates: start: 20000218

REACTIONS (10)
  - Death [Fatal]
  - Pyrexia [Unknown]
  - Chills [Unknown]
  - White blood cell count decreased [Unknown]
  - Confusional state [Unknown]
  - Pain in extremity [Unknown]
  - Constipation [Unknown]
  - Rectal haemorrhage [Unknown]
  - Hypotension [Unknown]
  - Fatigue [Unknown]
